FAERS Safety Report 8987220 (Version 2)
Quarter: 2013Q1

REPORT INFORMATION
  Report Type: Spontaneous
  Country: GB (occurrence: GB)
  Receive Date: 20121226
  Receipt Date: 20130214
  Transmission Date: 20140127
  Serious: Yes (Hospitalization, Other)
  Sender: FDA-Public Use
  Company Number: GB-WATSON-2012-22660

PATIENT
  Age: 45 Year
  Sex: Female

DRUGS (1)
  1. TRAMADOL HYDROCHLORIDE (UNKNOWN) [Suspect]
     Indication: NECK PAIN
     Dosage: BETWEEN 100 TO 200 MG, DAILY
     Route: 065
     Dates: end: 20121205

REACTIONS (5)
  - Hallucination [Unknown]
  - Visual impairment [Unknown]
  - Withdrawal syndrome [Unknown]
  - Overdose [Unknown]
  - Liver function test abnormal [Unknown]
